FAERS Safety Report 12463674 (Version 1)
Quarter: 2016Q2

REPORT INFORMATION
  Report Type: Spontaneous
  Country: US (occurrence: None)
  Receive Date: 20160613
  Receipt Date: 20160613
  Transmission Date: 20160815
  Serious: No
  Sender: FDA-Public Use
  Company Number: None

PATIENT
  Sex: Male

DRUGS (5)
  1. GLIMEPIRIDE. [Suspect]
     Active Substance: GLIMEPIRIDE
  2. LISINOPRIL. [Concomitant]
     Active Substance: LISINOPRIL
  3. METFORMIN [Concomitant]
     Active Substance: METFORMIN HYDROCHLORIDE
  4. METFORMIN, 1000 MG AMNEAL [Suspect]
     Active Substance: METFORMIN HYDROCHLORIDE
  5. RUGBY [Concomitant]
     Active Substance: CALCIUM CARBONATE

REACTIONS (5)
  - Dizziness [None]
  - Blood glucose increased [None]
  - Loss of consciousness [None]
  - Memory impairment [None]
  - Blood glucose fluctuation [None]
